FAERS Safety Report 6715191-7 (Version None)
Quarter: 2010Q2

REPORT INFORMATION
  Report Type: 
  Country: None (occurrence: None)
  Receive Date: 20100507
  Receipt Date: 20100503
  Transmission Date: 20101027
  Serious: Yes (Other)
  Sender: FDA-Public Use
  Company Number: CHPA2010US07745

PATIENT
  Age: 52 Year
  Sex: Female
  Weight: 53.515 kg

DRUGS (2)
  1. EXCEDRIN MIGRAINE (NCH) [Suspect]
     Indication: MIGRAINE
     Dosage: 2 DF, BID, PRN (ALTERNATES WITH TABLETS)
     Route: 048
  2. EXCEDRIN MIGRAINE (NCH) [Suspect]
     Dosage: 2 TABS BID, PRN, ALTERNATES WITH CAPLETS
     Route: 048

REACTIONS (3)
  - DRUG DEPENDENCE [None]
  - NO ADVERSE EVENT [None]
  - OVERDOSE [None]
